FAERS Safety Report 4458166-3 (Version None)
Quarter: 2004Q3

REPORT INFORMATION
  Report Type: 
  Country: None (occurrence: None)
  Receive Date: 20040923
  Receipt Date: 20040923
  Transmission Date: 20050211
  Serious: No
  Sender: FDA-Public Use
  Company Number: None

PATIENT
  Sex: Female

DRUGS (1)
  1. HEPARIN [Suspect]

REACTIONS (3)
  - HAEMORRHAGE [None]
  - MEDICATION ERROR [None]
  - PROTHROMBIN TIME PROLONGED [None]
